FAERS Safety Report 9936755 (Version 1)
Quarter: 2014Q1

REPORT INFORMATION
  Report Type: Spontaneous
  Country: US (occurrence: None)
  Receive Date: 20140107
  Receipt Date: 20140107
  Transmission Date: 20141002
  Serious: Yes (Other)
  Sender: FDA-Public Use
  Company Number: 2011AP002135

PATIENT
  Age: 59 Year
  Sex: Female

DRUGS (1)
  1. FLUTICASONE PROPIONATE [Suspect]
     Indication: PRODUCT USED FOR UNKNOWN INDICATION
     Route: 045
     Dates: start: 20110717

REACTIONS (5)
  - Drug ineffective [None]
  - Nasal congestion [None]
  - Nasal discomfort [None]
  - Condition aggravated [None]
  - Epistaxis [None]
